FAERS Safety Report 6645148-6 (Version None)
Quarter: 2010Q1

REPORT INFORMATION
  Report Type: 
  Country: None (occurrence: None)
  Receive Date: 20100322
  Receipt Date: 20100310
  Transmission Date: 20100710
  Serious: Yes (Hospitalization, Other)
  Sender: FDA-Public Use
  Company Number: US-WYE-H10594209

PATIENT
  Sex: Female
  Weight: 93 kg

DRUGS (7)
  1. EFFEXOR [Suspect]
     Indication: HOT FLUSH
     Dosage: UNKNOWN DOSE FROM UNKNOWN TO 30-JUL-2009; RESTARTED IN AUG-2009
     Route: 048
  2. TRAZODONE HCL [Suspect]
     Dosage: 1 DOSE 1 TIME PER 1 DAY FROM UNKNOWN TO 30-JUL-2009; RESTARTED IN AUG-2009
  3. KLONOPIN [Suspect]
     Indication: TREMOR
     Dosage: UNKNOWN TO 30-JUL-2009; RESTARTED IN AUG-2009
  4. TRAMADOL [Suspect]
     Indication: PAIN
     Dosage: 1 DOSE 1 TIME PER 1 DAY FROM UNKNOWN TO 30-JUL-2009; RESTARTED IN AUG-2009
  5. REBIF [Suspect]
     Indication: MULTIPLE SCLEROSIS
     Route: 058
     Dates: start: 20090625
  6. NEURONTIN [Suspect]
     Indication: NEUROPATHY PERIPHERAL
     Dosage: UNKNOWN
     Dates: start: 20000101, end: 20090730
  7. NEURONTIN [Suspect]
     Dosage: UNKNOWN
     Dates: start: 20090801

REACTIONS (6)
  - ACCIDENTAL OVERDOSE [None]
  - CONVULSION [None]
  - DRUG WITHDRAWAL SYNDROME [None]
  - FEELING OF BODY TEMPERATURE CHANGE [None]
  - LOSS OF CONSCIOUSNESS [None]
  - RETCHING [None]
